FAERS Safety Report 6875788-0 (Version None)
Quarter: 2010Q3

REPORT INFORMATION
  Report Type: 
  Country: None (occurrence: None)
  Receive Date: 20100727
  Receipt Date: 20100714
  Transmission Date: 20110219
  Serious: Yes (Other)
  Sender: FDA-Public Use
  Company Number: NL-PFIZER INC-2010067238

PATIENT
  Age: 25 Year
  Sex: Male
  Weight: 61 kg

DRUGS (1)
  1. DALACIN [Suspect]
     Indication: OSTEOMYELITIS
     Dosage: 600 MG, 3X/DAY
     Dates: start: 20100415

REACTIONS (1)
  - SPINAL CORD OEDEMA [None]
